FAERS Safety Report 5250549-7 (Version None)
Quarter: 2007Q1

REPORT INFORMATION
  Report Type: 
  Country: None (occurrence: None)
  Receive Date: 20070228
  Receipt Date: 20060526
  Transmission Date: 20070707
  Serious: No
  Sender: FDA-Public Use
  Company Number: US-GLAXOSMITHKLINE-A0607078A

PATIENT
  Age: 27 Year
  Sex: Female

DRUGS (6)
  1. LAMICTAL [Suspect]
     Indication: SCHIZOAFFECTIVE DISORDER
     Dosage: 25MG PER DAY
     Route: 048
     Dates: start: 20060525
  2. ABILIFY [Concomitant]
  3. KLONOPIN [Concomitant]
  4. RISPERDAL [Concomitant]
  5. EFFEXOR XR [Concomitant]
  6. PROVERA [Concomitant]

REACTIONS (1)
  - EXPIRED DRUG ADMINISTERED [None]
